FAERS Safety Report 22279168 (Version 2)
Quarter: 2023Q2

REPORT INFORMATION
  Report Type: Spontaneous
  Country: US (occurrence: US)
  Receive Date: 20230503
  Receipt Date: 20230612
  Transmission Date: 20230721
  Serious: Yes (Other)
  Sender: FDA-Public Use
  Company Number: US-PFIZER INC-PV202200108163

PATIENT
  Age: 63 Year
  Sex: Female

DRUGS (2)
  1. RETACRIT [Suspect]
     Active Substance: EPOETIN ALFA-EPBX
     Dosage: 40000 IU/ML EVERY 28 DAYS
  2. RETACRIT [Suspect]
     Active Substance: EPOETIN ALFA-EPBX
     Dosage: INJECT 40K UNITS OF RETACRIT, FREQUENCY: Q28D

REACTIONS (2)
  - Colorectal cancer stage IV [Unknown]
  - Off label use [Unknown]
